FAERS Safety Report 7991572-9 (Version None)
Quarter: 2011Q4

REPORT INFORMATION
  Report Type: 
  Country: None (occurrence: None)
  Receive Date: 20111219
  Receipt Date: 20111209
  Transmission Date: 20120403
  Serious: Yes (Hospitalization)
  Sender: FDA-Public Use
  Company Number: US-ASTRAZENECA-2009UW10250

PATIENT
  Age: 72 Year
  Sex: Male

DRUGS (4)
  1. SEROQUEL [Suspect]
     Route: 048
  2. SEROQUEL [Suspect]
     Route: 048
  3. SEROQUEL [Suspect]
     Route: 048
  4. SEROQUEL [Suspect]
     Route: 048

REACTIONS (17)
  - INSOMNIA [None]
  - PARANOIA [None]
  - ROAD TRAFFIC ACCIDENT [None]
  - DRUG WITHDRAWAL SYNDROME [None]
  - MUSCLE TWITCHING [None]
  - PNEUMONIA [None]
  - PAIN [None]
  - MENTAL DISORDER [None]
  - DRUG DOSE OMISSION [None]
  - DYSKINESIA [None]
  - INCORRECT DOSE ADMINISTERED [None]
  - DELUSION [None]
  - BRUXISM [None]
  - DEPRESSED MOOD [None]
  - DRUG DEPENDENCE [None]
  - DIABETES MELLITUS [None]
  - TREMOR [None]
